FAERS Safety Report 9314135 (Version 2)
Quarter: 2013Q2

REPORT INFORMATION
  Report Type: Spontaneous
  Country: JP (occurrence: JP)
  Receive Date: 20130529
  Receipt Date: 20130601
  Transmission Date: 20140414
  Serious: Yes (Other)
  Sender: FDA-Public Use
  Company Number: JP-009507513-1305JPN014926

PATIENT
  Age: 80 Year
  Sex: Male

DRUGS (11)
  1. MK-0000 (001) [Suspect]
  2. FAMOTIDINE [Suspect]
     Route: 048
  3. BETANIS [Suspect]
     Route: 048
  4. VALPROATE SODIUM [Concomitant]
     Route: 048
  5. OLMETEC [Concomitant]
     Route: 048
  6. SORENTMIN (BROTIZOLAM) [Concomitant]
     Route: 048
  7. MAGMITT [Concomitant]
     Route: 048
  8. CALONAL [Concomitant]
  9. TAMSULOSIN HYDROCHLORIDE [Concomitant]
     Route: 048
  10. LUPRAC [Concomitant]
     Route: 048
  11. SEDAGASTON [Concomitant]
     Route: 048

REACTIONS (1)
  - Inappropriate antidiuretic hormone secretion [Unknown]
